FAERS Safety Report 23527268 (Version 1)
Quarter: 2024Q1

REPORT INFORMATION
  Report Type: Spontaneous
  Country: CN (occurrence: CN)
  Receive Date: 20240215
  Receipt Date: 20240215
  Transmission Date: 20240410
  Serious: Yes (Other)
  Sender: FDA-Public Use
  Company Number: CN-PFIZER INC-PV202400019827

PATIENT
  Age: 9 Year
  Sex: Male
  Weight: 25 kg

DRUGS (1)
  1. AZITHROMYCIN [Suspect]
     Active Substance: AZITHROMYCIN
     Indication: Pneumonia mycoplasmal
     Dosage: 200 MG, 1X/DAY
     Route: 048
     Dates: start: 20240203, end: 20240205

REACTIONS (2)
  - Rash pruritic [Recovering/Resolving]
  - Rash erythematous [Recovering/Resolving]

NARRATIVE: CASE EVENT DATE: 20240205
